FAERS Safety Report 11544425 (Version 1)
Quarter: 2015Q3

REPORT INFORMATION
  Report Type: Spontaneous
  Country: US (occurrence: None)
  Receive Date: 20150923
  Receipt Date: 20150923
  Transmission Date: 20151125
  Serious: Yes (Other)
  Sender: FDA-Public Use
  Company Number: None

PATIENT
  Age: 50 Year
  Sex: Female
  Weight: 76.2 kg

DRUGS (18)
  1. VICTOZA [Suspect]
     Active Substance: LIRAGLUTIDE
     Indication: DIABETES MELLITUS
     Dosage: GIVEN LINTO/UNDER THE SKIN
     Dates: start: 20141124, end: 20150920
  2. CETIRIZINE [Concomitant]
     Active Substance: CETIRIZINE HYDROCHLORIDE
  3. IRON FERROUS SULFATE [Concomitant]
  4. MAGNESIUM CHELATED [Concomitant]
  5. LORATADINE. [Concomitant]
     Active Substance: LORATADINE
  6. D3 [Concomitant]
     Active Substance: 25-HYDROXYCHOLECALCIFEROL, 5-TRANS-
  7. YOUNG LIVING ^INNER DEFENSE^ [Concomitant]
  8. MELATONIN [Concomitant]
     Active Substance: MELATONIN
  9. CALCIUM SUPPLEMENT [Concomitant]
     Active Substance: CALCIUM
  10. VITAMIN D2 [Concomitant]
     Active Substance: ERGOCALCIFEROL
  11. YOUNG LIVING ^LONGEVITY^ [Concomitant]
  12. MAGNESIUM [Concomitant]
     Active Substance: MAGNESIUM
  13. CAT^S CLAW (UNCARIA TOMENTOSA) [Concomitant]
  14. GLUCOSAMINE [Concomitant]
     Active Substance: GLUCOSAMINE
  15. VITAMIN B COMPLEX [Concomitant]
     Active Substance: CYANOCOBALAMIN\DEXPANTHENOL\NIACINAMIDE\PYRIDOXINE HYDROCHLORIDE\RIBOFLAVIN 5^-PHOSPHATE SODIUM\THIAMINE HYDROCHLORIDE\VITAMIN B COMPLEX
  16. COQ10 [Concomitant]
     Active Substance: UBIDECARENONE
  17. LECITHIN [Concomitant]
     Active Substance: LECITHIN
  18. PROBIOTIC YOUNG LIVING ^LIFE 5^ [Concomitant]

REACTIONS (7)
  - Flatulence [None]
  - Nausea [None]
  - Gastrointestinal pain [None]
  - Vomiting projectile [None]
  - Drug interaction [None]
  - Diarrhoea [None]
  - Abdominal distension [None]

NARRATIVE: CASE EVENT DATE: 20150919
